FAERS Safety Report 12219921 (Version 2)
Quarter: 2016Q2

REPORT INFORMATION
  Report Type: Spontaneous
  Country: FR (occurrence: FR)
  Receive Date: 20160330
  Receipt Date: 20160429
  Transmission Date: 20160815
  Serious: Yes (Other)
  Sender: FDA-Public Use
  Company Number: FR-JNJFOC-20160319221

PATIENT
  Sex: Female

DRUGS (2)
  1. IMODIUM [Suspect]
     Active Substance: LOPERAMIDE HYDROCHLORIDE
     Indication: ANTIDIARRHOEAL SUPPORTIVE CARE
     Dosage: FOR ONE WEEK
     Route: 048
     Dates: start: 201503
  2. IMODIUM [Suspect]
     Active Substance: LOPERAMIDE HYDROCHLORIDE
     Indication: ANTIDIARRHOEAL SUPPORTIVE CARE
     Dosage: ONCE TO THREE TIMES A WEEK IF NEEDED
     Route: 048
     Dates: end: 201505

REACTIONS (5)
  - Drug hypersensitivity [Not Recovered/Not Resolved]
  - Visual acuity reduced [Not Recovered/Not Resolved]
  - Visual impairment [Recovered/Resolved]
  - Overdose [Unknown]
  - Ocular hypertension [Unknown]

NARRATIVE: CASE EVENT DATE: 201504
